FAERS Safety Report 16414509 (Version 1)
Quarter: 2019Q2

REPORT INFORMATION
  Report Type: Spontaneous
  Country: US (occurrence: US)
  Receive Date: 20190503
  Receipt Date: 20190503
  Transmission Date: 20190711
  Serious: No
  Sender: FDA-Public Use
  Company Number: None

PATIENT
  Age: 65 Year
  Sex: Male

DRUGS (1)
  1. METHOTREXATE TAB [Suspect]
     Active Substance: METHOTREXATE
     Route: 048
     Dates: start: 201903

REACTIONS (3)
  - Muscle spasms [None]
  - Abdominal discomfort [None]
  - Abdominal pain upper [None]

NARRATIVE: CASE EVENT DATE: 20190503
